FAERS Safety Report 10398214 (Version 1)
Quarter: 2014Q3

REPORT INFORMATION
  Report Type: Spontaneous
  Country: US (occurrence: None)
  Receive Date: 20140818
  Receipt Date: 20140818
  Transmission Date: 20150326
  Serious: Yes (Hospitalization)
  Sender: FDA-Public Use
  Company Number: None

PATIENT
  Age: 86 Year
  Sex: Male
  Weight: 72.8 kg

DRUGS (2)
  1. BACTRIM DS [Suspect]
     Active Substance: SULFAMETHOXAZOLE\TRIMETHOPRIM
     Indication: URINARY TRACT INFECTION
     Dosage: 800/160 1 TAB Q 12H PO
     Route: 048
     Dates: start: 20140718, end: 20140721
  2. WARFARIN [Suspect]
     Active Substance: WARFARIN
     Indication: ATRIAL FIBRILLATION
     Dosage: 1MG TUES + FRI PO
     Route: 048

REACTIONS (9)
  - Urinary tract infection [None]
  - Hypotension [None]
  - Asthenia [None]
  - Sepsis [None]
  - International normalised ratio increased [None]
  - Fall [None]
  - Renal failure acute [None]
  - Haematemesis [None]
  - Pallor [None]

NARRATIVE: CASE EVENT DATE: 20140721
